FAERS Safety Report 10683077 (Version 1)
Quarter: 2014Q4

REPORT INFORMATION
  Report Type: Spontaneous
  Country: US (occurrence: None)
  Receive Date: 20141217
  Receipt Date: 20141217
  Transmission Date: 20150529
  Serious: Yes (Hospitalization)
  Sender: FDA-Public Use
  Company Number: TPA2010A05626

PATIENT
  Age: 70 Year
  Sex: Female

DRUGS (4)
  1. DEXILANT [Suspect]
     Active Substance: DEXLANSOPRAZOLE
     Indication: GASTROINTESTINAL ULCER
     Route: 048
     Dates: start: 20100923, end: 20100924
  2. DEXILANT [Suspect]
     Active Substance: DEXLANSOPRAZOLE
     Indication: NAUSEA
     Route: 048
     Dates: start: 20100923, end: 20100924
  3. GABEPENTIN (GABAPENTIN) [Concomitant]
  4. OMEPRAZOLE (OMEPRAZOLE) [Concomitant]
     Active Substance: OMEPRAZOLE

REACTIONS (3)
  - Blood pressure increased [None]
  - Tremor [None]
  - Heart rate increased [None]

NARRATIVE: CASE EVENT DATE: 20100923
